FAERS Safety Report 5087906-8 (Version None)
Quarter: 2006Q3

REPORT INFORMATION
  Report Type: 
  Country: None (occurrence: None)
  Receive Date: 20060823
  Receipt Date: 20060823
  Transmission Date: 20061208
  Serious: Yes (Hospitalization)
  Sender: FDA-Public Use
  Company Number: None

PATIENT
  Age: 85 Year
  Sex: Female
  Weight: 74.3899 kg

DRUGS (1)
  1. NITROFURANTOIN [Suspect]
     Indication: CYSTITIS
     Dosage: TWO A DAY
     Dates: start: 20060812, end: 20060817

REACTIONS (9)
  - CHEST PAIN [None]
  - CHILLS [None]
  - CONFUSIONAL STATE [None]
  - DIZZINESS [None]
  - DYSPNOEA [None]
  - HEADACHE [None]
  - NAUSEA [None]
  - SPEECH DISORDER [None]
  - VOMITING [None]
